FAERS Safety Report 8535067-2 (Version None)
Quarter: 2012Q3

REPORT INFORMATION
  Report Type: 
  Country: None (occurrence: None)
  Receive Date: 20120724
  Receipt Date: 20120717
  Transmission Date: 20120928
  Serious: Yes (Other)
  Sender: FDA-Public Use
  Company Number: US-PFIZER INC-2012143538

PATIENT
  Sex: Female
  Weight: 79.365 kg

DRUGS (2)
  1. LYRICA [Suspect]
     Dosage: UNK
  2. PRISTIQ [Suspect]
     Indication: BIPOLAR DISORDER
     Dosage: 50 MG, DAILY
     Dates: start: 20110101

REACTIONS (6)
  - ORAL DISORDER [None]
  - NERVOUS SYSTEM DISORDER [None]
  - ANAEMIA [None]
  - BONE DISORDER [None]
  - FIBROMYALGIA [None]
  - ORAL PAIN [None]
